FAERS Safety Report 17241614 (Version 1)
Quarter: 2020Q1

REPORT INFORMATION
  Report Type: Spontaneous
  Country: US (occurrence: US)
  Receive Date: 20200107
  Receipt Date: 20200107
  Transmission Date: 20200409
  Serious: No
  Sender: FDA-Public Use
  Company Number: US-TARO-2019TAR00744

PATIENT
  Sex: Female

DRUGS (1)
  1. TRIAMCINOLONE ACETONIDE CREAM USP 0.1% [Suspect]
     Active Substance: TRIAMCINOLONE ACETONIDE
     Indication: HERPES ZOSTER
     Route: 061

REACTIONS (2)
  - Application site pain [Unknown]
  - Off label use [Unknown]
